FAERS Safety Report 10904838 (Version 2)
Quarter: 2015Q2

REPORT INFORMATION
  Report Type: Report from Study
  Country: US (occurrence: US)
  Receive Date: 20150311
  Receipt Date: 20150526
  Transmission Date: 20150821
  Serious: Yes (Hospitalization)
  Sender: FDA-Public Use
  Company Number: US-SANOFI-AVENTIS-2013SA087029

PATIENT
  Age: 70 Year
  Sex: Female

DRUGS (2)
  1. AUBAGIO [Suspect]
     Active Substance: TERIFLUNOMIDE
     Indication: RELAPSING-REMITTING MULTIPLE SCLEROSIS
     Dosage: TAKEN FROM: 14-AUG-2013 OR 18-AUG-2013
     Route: 048
     Dates: start: 20130125
  2. AUBAGIO [Suspect]
     Active Substance: TERIFLUNOMIDE
     Indication: RELAPSING-REMITTING MULTIPLE SCLEROSIS
     Route: 048
     Dates: start: 20130814, end: 201502

REACTIONS (27)
  - Memory impairment [Unknown]
  - Muscular weakness [Unknown]
  - Hypersomnia [Unknown]
  - Visual impairment [Not Recovered/Not Resolved]
  - Urinary tract infection [Unknown]
  - Tooth discolouration [Not Recovered/Not Resolved]
  - Diplopia [Not Recovered/Not Resolved]
  - Aphasia [Unknown]
  - Fatigue [Unknown]
  - Constipation [Unknown]
  - Paraesthesia [Not Recovered/Not Resolved]
  - Hypertension [Not Recovered/Not Resolved]
  - Cognitive disorder [Unknown]
  - Somnolence [Unknown]
  - Condition aggravated [Not Recovered/Not Resolved]
  - Hair texture abnormal [Not Recovered/Not Resolved]
  - Confusional state [Unknown]
  - Lethargy [Unknown]
  - Poor quality sleep [Not Recovered/Not Resolved]
  - Dehydration [Unknown]
  - Dysstasia [Unknown]
  - Paraesthesia oral [Not Recovered/Not Resolved]
  - Diarrhoea [Not Recovered/Not Resolved]
  - Abdominal pain upper [Not Recovered/Not Resolved]
  - Dental caries [Not Recovered/Not Resolved]
  - Dementia [Unknown]
  - Eye disorder [Not Recovered/Not Resolved]

NARRATIVE: CASE EVENT DATE: 20130826
